FAERS Safety Report 6321711-7 (Version None)
Quarter: 2009Q3

REPORT INFORMATION
  Report Type: 
  Country: None (occurrence: None)
  Receive Date: 20090824
  Receipt Date: 20090818
  Transmission Date: 20100115
  Serious: Yes (Hospitalization)
  Sender: FDA-Public Use
  Company Number: ES-JNJFOC-20090505942

PATIENT
  Age: 57 Year
  Sex: Male

DRUGS (6)
  1. REMICADE [Suspect]
     Indication: PSORIATIC ARTHROPATHY
     Route: 042
  2. REMICADE [Suspect]
     Indication: RHEUMATOID ARTHRITIS
     Route: 042
  3. DICLOFENAC [Concomitant]
  4. EUTIROX [Concomitant]
  5. AMERIDE [Concomitant]
  6. OMEPRAZOLE [Concomitant]

REACTIONS (3)
  - ATRIAL TACHYCARDIA [None]
  - HYPERTENSION [None]
  - VENTRICULAR DYSFUNCTION [None]
